FAERS Safety Report 25145468 (Version 1)
Quarter: 2025Q2

REPORT INFORMATION
  Report Type: Spontaneous
  Country: FR (occurrence: FR)
  Receive Date: 20250401
  Receipt Date: 20250401
  Transmission Date: 20250716
  Serious: Yes (Hospitalization)
  Sender: JOHNSON AND JOHNSON
  Company Number: None

PATIENT
  Age: 14 Year
  Sex: Female

DRUGS (2)
  1. CONCERTA [Suspect]
     Active Substance: METHYLPHENIDATE HYDROCHLORIDE
     Indication: Product used for unknown indication
     Route: 048
     Dates: start: 20250226, end: 20250226
  2. DIOSMIN\HESPERIDIN [Suspect]
     Active Substance: DIOSMIN\HESPERIDIN
     Indication: Product used for unknown indication
     Route: 048
     Dates: start: 20250226, end: 20250226

REACTIONS (4)
  - Drug use disorder [Unknown]
  - Mydriasis [Unknown]
  - Somnolence [Unknown]
  - Supraventricular tachycardia [Unknown]

NARRATIVE: CASE EVENT DATE: 20250226
